FAERS Safety Report 22381517 (Version 18)
Quarter: 2024Q4

REPORT INFORMATION
  Report Type: Report from Study
  Country: BE (occurrence: BE)
  Receive Date: 20230530
  Receipt Date: 20241029
  Transmission Date: 20250115
  Serious: Yes (Hospitalization, Other)
  Sender: EXELIXIS
  Company Number: BE-IPSEN Group, Research and Development-2023-05434

PATIENT

DRUGS (10)
  1. CABOZANTINIB [Suspect]
     Active Substance: CABOZANTINIB
     Indication: Metastatic renal cell carcinoma
     Dosage: 60 MG, QD
     Route: 048
     Dates: start: 20230202, end: 20230501
  2. CABOZANTINIB [Suspect]
     Active Substance: CABOZANTINIB
     Dosage: 40 MG, QD
     Route: 048
     Dates: start: 20230509, end: 20230703
  3. CABOZANTINIB [Suspect]
     Active Substance: CABOZANTINIB
     Dosage: 20 MG, QD
     Route: 048
     Dates: start: 20230714, end: 20231127
  4. MOVICOL [Concomitant]
     Active Substance: POLYETHYLENE GLYCOL 3350\POTASSIUM CHLORIDE\SODIUM BICARBONATE\SODIUM CHLORIDE
     Indication: Constipation
     Dosage: AS NEEDED
     Route: 048
     Dates: start: 20230310
  5. AUGMENTIN [Concomitant]
     Active Substance: AMOXICILLIN\CLAVULANATE POTASSIUM
     Indication: Respiratory tract infection
     Dosage: 875 MG, TID
     Route: 048
     Dates: start: 20230504, end: 20230519
  6. AUGMENTIN [Concomitant]
     Active Substance: AMOXICILLIN\CLAVULANATE POTASSIUM
     Indication: Pyrexia
     Dosage: 875 MG, TID
     Dates: start: 20231219, end: 20231225
  7. SULFAMETHOXAZOLE\TRIMETHOPRIM [Concomitant]
     Active Substance: SULFAMETHOXAZOLE\TRIMETHOPRIM
     Indication: Respiratory tract infection
     Dosage: 800 MG, BID (800/160MG, TWICE PER DAY)
     Route: 048
     Dates: start: 20230505, end: 20230519
  8. Purilon [Concomitant]
     Indication: Decubitus ulcer
     Dosage: 1 APPLICATION
     Route: 003
     Dates: start: 20230508, end: 20230905
  9. HONEY PATCH [Concomitant]
     Indication: Decubitus ulcer
     Dosage: OTHER EVERY 2 DAYS
     Route: 062
     Dates: start: 20230906
  10. AMOXICILLIN\CLAVULANIC ACID [Concomitant]
     Active Substance: AMOXICILLIN\CLAVULANIC ACID
     Indication: Pneumonia
     Dosage: 875/125 MG 3 TIMES PER DAY
     Route: 048
     Dates: start: 20231009, end: 20231015

REACTIONS (9)
  - Gingivitis [Recovered/Resolved]
  - General physical health deterioration [Recovered/Resolved with Sequelae]
  - Epilepsy [Not Recovered/Not Resolved]
  - COVID-19 [Recovered/Resolved]
  - Muscular weakness [Not Recovered/Not Resolved]
  - Alopecia [Not Recovered/Not Resolved]
  - Lacrimation increased [Recovered/Resolved]
  - Dry skin [Recovered/Resolved]
  - Mucosal inflammation [Recovered/Resolved]

NARRATIVE: CASE EVENT DATE: 20230225
